FAERS Safety Report 4848401-1 (Version None)
Quarter: 2005Q4

REPORT INFORMATION
  Report Type: 
  Country: None (occurrence: None)
  Receive Date: 20051208
  Receipt Date: 20051108
  Transmission Date: 20060501
  Serious: Yes (Other)
  Sender: FDA-Public Use
  Company Number: NL-ROCHE-423945

PATIENT
  Age: 59 Year
  Sex: Female

DRUGS (6)
  1. ORLISTAT [Suspect]
     Indication: WEIGHT CONTROL
     Route: 065
  2. VENLAFAXINE HCL [Interacting]
     Indication: DEPRESSION
     Route: 065
  3. LITHIUM [Interacting]
     Indication: DEPRESSION
     Dosage: TAKEN IN THE EVENING.
     Route: 065
  4. MIRTAZAPINE [Concomitant]
     Indication: DEPRESSION
  5. VALPROIC ACID [Concomitant]
  6. IBUPROFEN [Concomitant]

REACTIONS (8)
  - ANGINA PECTORIS [None]
  - BLOOD GLUCOSE DECREASED [None]
  - BLOOD POTASSIUM DECREASED [None]
  - DIARRHOEA [None]
  - DRUG INTERACTION [None]
  - DRUG TOXICITY [None]
  - LONG QT SYNDROME [None]
  - PALLOR [None]
